FAERS Safety Report 5678386-X (Version None)
Quarter: 2008Q1

REPORT INFORMATION
  Report Type: 
  Country: None (occurrence: None)
  Receive Date: 20080320
  Receipt Date: 20080309
  Transmission Date: 20080703
  Serious: Yes (Hospitalization)
  Sender: FDA-Public Use
  Company Number: 080311-0000208

PATIENT
  Age: 42 Year
  Sex: Female

DRUGS (1)
  1. DESOXYN [Suspect]
     Indication: DRUG USE FOR UNKNOWN INDICATION
     Dosage: NAS
     Route: 045

REACTIONS (13)
  - ARTERIAL SPASM [None]
  - BLOOD PRESSURE INCREASED [None]
  - CARDIAC OUTPUT DECREASED [None]
  - DRUG ABUSE [None]
  - MITRAL VALVE INCOMPETENCE [None]
  - PALPITATIONS [None]
  - PERIPHERAL COLDNESS [None]
  - POOR PERIPHERAL CIRCULATION [None]
  - PROCEDURAL HYPOTENSION [None]
  - PULSE ABSENT [None]
  - STRESS CARDIOMYOPATHY [None]
  - VENTRICULAR DYSFUNCTION [None]
  - VOMITING [None]
